FAERS Safety Report 9189084 (Version 1)
Quarter: 2013Q1

REPORT INFORMATION
  Report Type: Spontaneous
  Country: US (occurrence: US)
  Receive Date: 20130326
  Receipt Date: 20130326
  Transmission Date: 20140127
  Serious: No
  Sender: FDA-Public Use
  Company Number: US-BIOGENIDEC-2013BI027391

PATIENT
  Age: 41 Year
  Sex: Female

DRUGS (1)
  1. AVONEX [Suspect]
     Indication: MULTIPLE SCLEROSIS
     Route: 030
     Dates: start: 20130215

REACTIONS (8)
  - Frustration [Not Recovered/Not Resolved]
  - Reading disorder [Unknown]
  - Blindness [Unknown]
  - Cognitive disorder [Unknown]
  - Pneumonia [Unknown]
  - Irritability [Unknown]
  - Visual impairment [Unknown]
  - Influenza like illness [Not Recovered/Not Resolved]
